FAERS Safety Report 13077364 (Version 1)
Quarter: 2016Q4

REPORT INFORMATION
  Report Type: Spontaneous
  Country: US (occurrence: US)
  Receive Date: 20161230
  Receipt Date: 20161230
  Transmission Date: 20170207
  Serious: No
  Sender: FDA-Public Use
  Company Number: US-DRREDDYS-USA/USA/16/0084551

PATIENT
  Age: 72 Year
  Sex: Male

DRUGS (1)
  1. NICOTINE. [Suspect]
     Active Substance: NICOTINE
     Indication: SMOKING CESSATION THERAPY
     Route: 061

REACTIONS (9)
  - Application site pain [Not Recovered/Not Resolved]
  - Overdose [Unknown]
  - Application site erythema [Not Recovered/Not Resolved]
  - Therapeutic response decreased [Unknown]
  - Treatment noncompliance [Unknown]
  - Product quality issue [Unknown]
  - Nicotine dependence [Unknown]
  - Anxiety [Not Recovered/Not Resolved]
  - Incorrect drug administration duration [Unknown]
